FAERS Safety Report 6154062-4 (Version None)
Quarter: 2009Q2

REPORT INFORMATION
  Report Type: 
  Country: None (occurrence: None)
  Receive Date: 20090414
  Receipt Date: 20090403
  Transmission Date: 20091009
  Serious: Yes (Life-Threatening, Hospitalization)
  Sender: FDA-Public Use
  Company Number: FR-AMGEN-UK310727

PATIENT
  Sex: Female

DRUGS (4)
  1. NEULASTA [Suspect]
     Indication: CHEMOTHERAPY
     Route: 058
     Dates: start: 20080704, end: 20080704
  2. CARBOPLATIN [Concomitant]
  3. NAVELBINE [Concomitant]
     Route: 065
  4. ALIMTA [Concomitant]
     Route: 065

REACTIONS (2)
  - SHOCK HAEMORRHAGIC [None]
  - SPLENIC RUPTURE [None]
